FAERS Safety Report 20811558 (Version 3)
Quarter: 2023Q1

REPORT INFORMATION
  Report Type: Report from Study
  Country: GB (occurrence: GB)
  Receive Date: 20220510
  Receipt Date: 20230304
  Transmission Date: 20230417
  Serious: Yes (Other)
  Sender: FDA-Public Use
  Company Number: GB-ABBVIE-22K-167-4385040-00

PATIENT
  Age: 66 Year
  Sex: Female

DRUGS (18)
  1. RISANKIZUMAB [Suspect]
     Active Substance: RISANKIZUMAB
     Indication: Psoriasis
     Route: 058
     Dates: start: 20210607
  2. AMITRIPTYLINE [Concomitant]
     Active Substance: AMITRIPTYLINE
     Indication: Neuralgia
     Route: 048
     Dates: start: 20171001
  3. BENDROFLUMETHIAZIDE [Concomitant]
     Active Substance: BENDROFLUMETHIAZIDE
     Indication: Hypertension
     Route: 048
     Dates: start: 20160301
  4. DIHYDROCODEINE [Concomitant]
     Active Substance: DIHYDROCODEINE
     Indication: Pain
     Route: 048
     Dates: start: 20181010, end: 20210801
  5. PREGABALIN [Concomitant]
     Active Substance: PREGABALIN
     Indication: Pain
     Route: 048
     Dates: start: 20180808
  6. BUDESONIDE\FORMOTEROL [Concomitant]
     Active Substance: BUDESONIDE\FORMOTEROL
     Indication: Chronic obstructive pulmonary disease
     Dosage: 60.00 MICROGRAMS/ 4.5MICROGRAMS?FREQUENCY TEXT: AS NEEDED
     Route: 045
     Dates: start: 20180801
  7. CELECOXIB [Concomitant]
     Active Substance: CELECOXIB
     Indication: Pain management
     Route: 048
     Dates: start: 20220616, end: 20220716
  8. BECLOMETHASONE\FORMOTEROL [Concomitant]
     Active Substance: BECLOMETHASONE\FORMOTEROL
     Indication: Chronic obstructive pulmonary disease
     Dosage: FREQUENCY TEXT: AS NEEDED
     Route: 045
     Dates: start: 20210201
  9. RAMIPRIL [Concomitant]
     Active Substance: RAMIPRIL
     Indication: Hypertension
     Route: 048
     Dates: start: 20190601
  10. ETORICOXIB [Concomitant]
     Active Substance: ETORICOXIB
     Indication: Osteoarthritis
     Route: 048
     Dates: start: 20190601, end: 20201110
  11. OMEPRAZOLE [Concomitant]
     Active Substance: OMEPRAZOLE
     Indication: Gastrooesophageal reflux disease
     Route: 048
     Dates: start: 20180613
  12. ALBUTEROL [Concomitant]
     Active Substance: ALBUTEROL
     Indication: Chronic obstructive pulmonary disease
     Dosage: FREQUENCY TEXT: AS NEEDED
     Route: 045
     Dates: start: 20160714
  13. NAPROXEN [Concomitant]
     Active Substance: NAPROXEN
     Indication: Osteoarthritis
     Dosage: TIME INTERVAL: 0.33333333 DAYS
     Route: 048
     Dates: start: 20201115
  14. LIDOCAINE;METHYLPREDNISOLONE [Concomitant]
     Indication: Psoriatic arthropathy
     Route: 014
     Dates: start: 20210708, end: 20210708
  15. LIDOCAINE;METHYLPREDNISOLONE [Concomitant]
     Indication: Psoriatic arthropathy
     Route: 014
     Dates: start: 20210723, end: 20210723
  16. LIDOCAINE;METHYLPREDNISOLONE [Concomitant]
     Indication: Psoriatic arthropathy
     Route: 008
     Dates: start: 20211006, end: 20211006
  17. LIDOCAINE;METHYLPREDNISOLONE [Concomitant]
     Indication: Psoriatic arthropathy
     Route: 008
     Dates: start: 20211124, end: 20211124
  18. TRIMOVATE [Concomitant]
     Active Substance: CLOBETASONE BUTYRATE\NYSTATIN\OXYTETRACYCLINE CALCIUM
     Indication: Genital candidiasis
     Dosage: 1.00 THIN APPLICATION
     Route: 058
     Dates: start: 20211125, end: 20211215

REACTIONS (2)
  - Lichen planus [Unknown]
  - Impaired healing [Not Recovered/Not Resolved]
